FAERS Safety Report 8557308 (Version 6)
Quarter: 2012Q4

REPORT INFORMATION
  Report Type: 
  Country: US (occurrence: US)
  Receive Date: 20120511
  Receipt Date: 20120907
  Transmission Date: 20130627
  Serious: Yes (Life-Threatening, Hospitalization)
  Sender: FDA-Public Use
  Company Number: US-PFIZER INC-2012111290

PATIENT
  Age: 38 Year
  Sex: Female
  Weight: 90.7 kg

DRUGS (17)
  1. AXITINIB [Suspect]
     Indication: THYROID CANCER METASTATIC
     Dosage: 3 mg, 2x/day
     Route: 048
     Dates: start: 20081008, end: 20120504
  2. LEVOXYL [Concomitant]
     Indication: THYROID HORMONE REPLACEMENT THERAPY
     Dosage: 250 ug, 1x/day
     Route: 048
     Dates: start: 1996
  3. NORVASC [Concomitant]
     Indication: HYPERTENSION
     Dosage: 5 mg, 1x/day
     Route: 048
     Dates: start: 2010, end: 20120505
  4. SIMVASTATIN [Concomitant]
     Indication: CORONARY ARTERY DISEASE
     Dosage: 40 mg, 1x/day
     Route: 048
     Dates: start: 2010, end: 20120505
  5. SIMVASTATIN [Concomitant]
     Indication: HYPERLIPIDAEMIA
  6. ASPIRIN [Concomitant]
     Indication: CORONARY ARTERY DISEASE
     Dosage: 81 mg, 1x/day
     Route: 048
     Dates: start: 2010, end: 20120506
  7. CELEXA [Concomitant]
     Indication: DEPRESSION
     Dosage: 40 mg, 1x/day
     Route: 048
     Dates: start: 2008
  8. ZANTAC [Concomitant]
     Indication: GASTROOESOPHAGEAL REFLUX DISEASE
     Dosage: 150 mg, as needed
     Route: 048
     Dates: end: 20120505
  9. FISH OIL [Concomitant]
     Indication: CORONARY ARTERY DISEASE
     Dosage: 1000 mg, 2x/day
     Route: 048
     Dates: start: 2011, end: 20120505
  10. FISH OIL [Concomitant]
     Indication: BLOOD CHOLESTEROL
  11. ATIVAN [Concomitant]
     Indication: NAUSEA
     Dosage: 1-2 mg,as needed
     Route: 048
     Dates: start: 2010
  12. ATIVAN [Concomitant]
     Indication: ANXIETY
  13. LOMOTIL [Concomitant]
     Indication: DIARRHOEA
     Dosage: 2.5 mg, as needed
     Route: 048
     Dates: start: 2010, end: 20120505
  14. IMODIUM [Concomitant]
     Indication: DIARRHOEA
     Dosage: 2-4 mg, as needed
     Route: 048
     Dates: start: 2008
  15. MUCINEX [Concomitant]
     Indication: NASAL CONGESTION
     Dosage: UNK  prn
     Route: 048
     Dates: end: 20120505
  16. VITAMIN D [Concomitant]
     Indication: VITAMIN SUPPLEMENTATION
     Dosage: 1, 1x/day
     Route: 048
     Dates: start: 2012, end: 20120505
  17. FAMOTIDINE [Concomitant]
     Indication: GASTROOESOPHAGEAL REFLUX DISEASE
     Dosage: 20 mg, 1x/day
     Route: 048
     Dates: start: 20120503

REACTIONS (2)
  - Acute coronary syndrome [Recovered/Resolved with Sequelae]
  - Cardio-respiratory arrest [Recovered/Resolved with Sequelae]
